FAERS Safety Report 7728306-9 (Version None)
Quarter: 2011Q3

REPORT INFORMATION
  Report Type: 
  Country: None (occurrence: None)
  Receive Date: 20110905
  Receipt Date: 20110831
  Transmission Date: 20111222
  Serious: Yes (Death, Hospitalization)
  Sender: FDA-Public Use
  Company Number: PHHY2011US48329

PATIENT
  Sex: Female

DRUGS (1)
  1. ZOMETA [Suspect]
     Indication: METASTASES TO BONE
     Dosage: 4 MG, EVERY 4 WEEKS
     Route: 042
     Dates: start: 20101101, end: 20110228

REACTIONS (8)
  - DYSPNOEA [None]
  - GENERAL PHYSICAL HEALTH DETERIORATION [None]
  - METASTASES TO CHEST WALL [None]
  - RESPIRATORY DISTRESS [None]
  - NEOPLASM MALIGNANT [None]
  - SLOW RESPONSE TO STIMULI [None]
  - SKIN GRAFT [None]
  - NEOPLASM PROGRESSION [None]
